FAERS Safety Report 24758741 (Version 1)
Quarter: 2024Q4

REPORT INFORMATION
  Report Type: Spontaneous
  Country: US (occurrence: None)
  Receive Date: 20241220
  Receipt Date: 20241220
  Transmission Date: 20250115
  Serious: Yes (Hospitalization)
  Sender: Public
  Company Number: None

PATIENT
  Age: 83 Year
  Sex: Female
  Weight: 44.2 kg

DRUGS (3)
  1. FLUOROURACIL [Suspect]
     Active Substance: FLUOROURACIL
     Dates: end: 20200909
  2. LEUCOVORIN CALCIUM [Suspect]
     Active Substance: LEUCOVORIN CALCIUM
     Dates: end: 20200929
  3. ELOXATIN [Suspect]
     Active Substance: OXALIPLATIN
     Dates: end: 20200929

REACTIONS (2)
  - Anaemia [None]
  - Iron deficiency [None]

NARRATIVE: CASE EVENT DATE: 20241129
